FAERS Safety Report 13987778 (Version 3)
Quarter: 2018Q1

REPORT INFORMATION
  Report Type: Report from Study
  Country: JP (occurrence: JP)
  Receive Date: 20170919
  Receipt Date: 20180109
  Transmission Date: 20180508
  Serious: Yes (Death)
  Sender: FDA-Public Use
  Company Number: JP-MALLINCKRODT-T201703778

PATIENT
  Age: 1 Year
  Sex: Female
  Weight: 9 kg

DRUGS (35)
  1. INOVAN [Concomitant]
     Active Substance: DOPAMINE HYDROCHLORIDE
     Indication: PRODUCT USED FOR UNKNOWN INDICATION
     Dosage: 2.24 MG/HR, CONTINUOUS
     Route: 042
     Dates: start: 20161112, end: 20161114
  2. FENTANYL. [Concomitant]
     Active Substance: FENTANYL
     Dosage: 12 UG/HR, CONTINUOUS
     Route: 042
     Dates: start: 20161112, end: 20161112
  3. MILRINONE [Concomitant]
     Active Substance: MILRINONE
     Dosage: 0.42 MG/HR, CONTINUOUS
     Route: 042
     Dates: start: 20161112, end: 20161207
  4. NOVOLIN R [Concomitant]
     Active Substance: INSULIN HUMAN
     Indication: PRODUCT USED FOR UNKNOWN INDICATION
     Dosage: 1.5 ML/HR CONTINUOUS (2U 150 ML)
     Route: 042
     Dates: start: 20161111, end: 20161111
  5. NITRIC OXIDE. [Suspect]
     Active Substance: NITRIC OXIDE
     Dosage: 3PPM
     Dates: start: 20161117, end: 20161117
  6. NITRIC OXIDE. [Suspect]
     Active Substance: NITRIC OXIDE
     Dosage: 1PPM
     Dates: start: 20161117, end: 20161117
  7. FENTANYL. [Concomitant]
     Active Substance: FENTANYL
     Indication: PRODUCT USED FOR UNKNOWN INDICATION
     Dosage: 18 UG/HR, CONTINUOUS
     Route: 042
     Dates: start: 20161111, end: 20161111
  8. FENTANYL. [Concomitant]
     Active Substance: FENTANYL
     Dosage: 8 UG/HR, CONTINUOUS
     Route: 042
     Dates: start: 20161113, end: 20161115
  9. MIDAZOLAM [Concomitant]
     Active Substance: MIDAZOLAM HYDROCHLORIDE
     Indication: PRODUCT USED FOR UNKNOWN INDICATION
     Dosage: 1.8 MG/HR CONTINUOUS
     Route: 042
     Dates: start: 20161111, end: 20161207
  10. FUROSEMIDE. [Concomitant]
     Active Substance: FUROSEMIDE
     Indication: PRODUCT USED FOR UNKNOWN INDICATION
     Dosage: 2 MG, 2 TIMES A DAY
     Route: 042
     Dates: start: 20161111, end: 20161111
  11. NOVOLIN R [Concomitant]
     Active Substance: INSULIN HUMAN
     Dosage: 1 ML/HR CONTINUOUS (2U 150 ML)
     Route: 042
     Dates: start: 20161112, end: 20161112
  12. NITRIC OXIDE. [Suspect]
     Active Substance: NITRIC OXIDE
     Dosage: 5PPM
     Dates: start: 20161117, end: 20161117
  13. FAMOTIDINE. [Concomitant]
     Active Substance: FAMOTIDINE
     Indication: PRODUCT USED FOR UNKNOWN INDICATION
     Dosage: 1.3 MG, 2 TIMES A DAY
     Route: 042
     Dates: start: 20161110, end: 20161117
  14. MILRINONE [Concomitant]
     Active Substance: MILRINONE
     Indication: PRODUCT USED FOR UNKNOWN INDICATION
     Dosage: 0.28 MG/HR, CONTINUOUS
     Route: 042
     Dates: start: 20161111, end: 20161111
  15. DIAZEPAM. [Concomitant]
     Active Substance: DIAZEPAM
     Indication: PRODUCT USED FOR UNKNOWN INDICATION
     Dosage: 2 MG, 1 TIME
     Route: 042
     Dates: start: 20161110, end: 20161112
  16. RINDERON V [Concomitant]
     Active Substance: BETAMETHASONE VALERATE
     Indication: PRODUCT USED FOR UNKNOWN INDICATION
     Dosage: 1.3 MG, 2 TIMES A DAY
     Route: 042
     Dates: start: 20161110, end: 20161117
  17. FENTANYL. [Concomitant]
     Active Substance: FENTANYL
     Dosage: 18 UG/HR, CONTINUOUS
     Route: 042
     Dates: start: 20161116, end: 20161117
  18. POTASSIUM CHLORIDE. [Concomitant]
     Active Substance: POTASSIUM CHLORIDE
     Indication: PRODUCT USED FOR UNKNOWN INDICATION
     Dosage: 1 ML/HR CONTINUOUS (10 ML WITH 5% SUGAR SOLUTION 10 ML)
     Route: 042
     Dates: start: 20161114, end: 20161114
  19. POTASSIUM CHLORIDE. [Concomitant]
     Active Substance: POTASSIUM CHLORIDE
     Dosage: 0.5 ML/HR CONTINUOUS (10 ML WITH 5% SUGAR SOLUTION 10 ML)
     Route: 042
     Dates: start: 20161115, end: 20161115
  20. VICCILLIN S [Concomitant]
     Indication: PRODUCT USED FOR UNKNOWN INDICATION
     Dosage: 200 MG, 1 TIME
     Route: 042
     Dates: start: 20161116, end: 20161116
  21. CALCICOL [Concomitant]
     Active Substance: CALCIUM GLUCONATE
     Indication: PRODUCT USED FOR UNKNOWN INDICATION
     Dosage: 3 ML/HR CONTINUOUS
     Route: 042
     Dates: start: 20161111, end: 20161114
  22. CONTOMIN [Concomitant]
     Active Substance: CHLORPROMAZINE
     Indication: PRODUCT USED FOR UNKNOWN INDICATION
     Dosage: 20 UG, 1 TIME
     Route: 042
     Dates: start: 20161114, end: 20161115
  23. NITRIC OXIDE. [Suspect]
     Active Substance: NITRIC OXIDE
     Indication: PULMONARY HYPERTENSION
     Dosage: 10PPM
     Dates: start: 20161111, end: 20161117
  24. PROTAMIN [Concomitant]
     Active Substance: PROTAMINE
     Indication: PRODUCT USED FOR UNKNOWN INDICATION
     Dosage: UNK
     Route: 065
  25. VICCILLIN S [Concomitant]
     Dosage: 200 MG, 2 TIMES
     Route: 042
     Dates: start: 20161117, end: 20161117
  26. FUROSEMIDE. [Concomitant]
     Active Substance: FUROSEMIDE
     Dosage: 2 MG, 1 TIME A DAY
     Route: 042
     Dates: start: 20161112, end: 20161112
  27. INOVAN [Concomitant]
     Active Substance: DOPAMINE HYDROCHLORIDE
     Dosage: 1.68 MG/HR, CONTINUOUS
     Route: 042
     Dates: start: 20161115, end: 20161115
  28. VECURONIUM [Concomitant]
     Active Substance: VECURONIUM BROMIDE
     Indication: PRODUCT USED FOR UNKNOWN INDICATION
     Dosage: 0.9 MG, 1 TIME
     Route: 042
     Dates: start: 20161110, end: 20161112
  29. BOSMIN [Concomitant]
     Active Substance: EPINEPHRINE
     Indication: PRODUCT USED FOR UNKNOWN INDICATION
     Dosage: 8 UG/HR CONTINUOUS
     Route: 042
     Dates: start: 20161111, end: 20161111
  30. BOSMIN [Concomitant]
     Active Substance: EPINEPHRINE
     Dosage: 4 UG/HR CONTINUOUS
     Route: 042
     Dates: start: 20161112, end: 20161112
  31. FUROSEMIDE. [Concomitant]
     Active Substance: FUROSEMIDE
     Dosage: 3 MG, 1 TIME A DAY
     Route: 042
     Dates: start: 20161112, end: 20161112
  32. PRECEDEX [Concomitant]
     Active Substance: DEXMEDETOMIDINE HYDROCHLORIDE
     Indication: PRODUCT USED FOR UNKNOWN INDICATION
     Dosage: 6.4 UG/HR, CONTINUOUS
     Route: 042
     Dates: start: 20161110, end: 20161114
  33. FUROSEMIDE. [Concomitant]
     Active Substance: FUROSEMIDE
     Dosage: 3 MG, 1 TIME A DAY
     Route: 042
     Dates: start: 20161113, end: 20161113
  34. VANCOMYCIN [Concomitant]
     Active Substance: VANCOMYCIN
     Indication: PRODUCT USED FOR UNKNOWN INDICATION
     Dosage: 120 MG, 3 TIMES A DAY
     Route: 042
     Dates: start: 20161111, end: 20161113
  35. HIBERNA [Concomitant]
     Active Substance: PROMETHAZINE HYDROCHLORIDE
     Indication: PRODUCT USED FOR UNKNOWN INDICATION
     Dosage: 20 UG, 1 TIME
     Route: 042
     Dates: start: 20161114, end: 20161115

REACTIONS (1)
  - Acute kidney injury [Fatal]

NARRATIVE: CASE EVENT DATE: 20161111
